FAERS Safety Report 24753939 (Version 1)
Quarter: 2024Q4

REPORT INFORMATION
  Report Type: Report from Study
  Country: ZA (occurrence: ZA)
  Receive Date: 20241219
  Receipt Date: 20241219
  Transmission Date: 20250114
  Serious: Yes (Hospitalization)
  Sender: ABBVIE
  Company Number: ZA-ABBVIE-6053159

PATIENT
  Age: 53 Year
  Sex: Male

DRUGS (2)
  1. BOTOX [Suspect]
     Active Substance: ONABOTULINUMTOXINA
     Indication: Muscle spasticity
     Dosage: TIME INTERVAL: AS NECESSARY: 150 UNITS (50+100), FORM STRENGTH 50 INTERNATIONAL UNIT, EVERY 3 MONTHS
     Route: 065
     Dates: start: 20240911, end: 20240911
  2. BOTOX [Suspect]
     Active Substance: ONABOTULINUMTOXINA
     Indication: Muscle spasticity
     Dosage: TIME INTERVAL: AS NECESSARY: 150 UNITS (50+100), FORM STRENGTH 100 INTERNATIONAL UNIT, EVERY 3 MO...
     Route: 065
     Dates: start: 20240911, end: 20240911

REACTIONS (1)
  - Surgery [Unknown]

NARRATIVE: CASE EVENT DATE: 20240101
